FAERS Safety Report 7919416-1 (Version None)
Quarter: 2011Q4

REPORT INFORMATION
  Report Type: 
  Country: None (occurrence: None)
  Receive Date: 20111115
  Receipt Date: 20111102
  Transmission Date: 20120403
  Serious: Yes (Other)
  Sender: FDA-Public Use
  Company Number: 1102466

PATIENT
  Age: 17 Year
  Sex: Male

DRUGS (2)
  1. MORPHINE [Concomitant]
  2. KETAMINE HCL [Suspect]
     Indication: SURGERY
     Dosage: 20 MG MILLIGRAM(S)
     Dates: start: 20110828

REACTIONS (3)
  - LARYNGOSPASM [None]
  - TRISMUS [None]
  - APNOEA [None]
